FAERS Safety Report 17186567 (Version 5)
Quarter: 2020Q3

REPORT INFORMATION
  Report Type: Spontaneous
  Country: JP (occurrence: JP)
  Receive Date: 20191220
  Receipt Date: 20200728
  Transmission Date: 20201102
  Serious: Yes (Death, Hospitalization, Other)
  Sender: FDA-Public Use
  Company Number: JP-ELI_LILLY_AND_COMPANY-JP201912009619

PATIENT
  Age: 79 Year
  Sex: Female

DRUGS (2)
  1. TRULICITY [Suspect]
     Active Substance: DULAGLUTIDE
     Indication: TYPE 2 DIABETES MELLITUS
     Dosage: UNK
     Route: 058
     Dates: start: 20170213
  2. INSULIN [Concomitant]
     Active Substance: INSULIN NOS

REACTIONS (7)
  - Hepatic failure [Fatal]
  - Respiratory failure [Fatal]
  - Feeding disorder [Unknown]
  - Blood immunoglobulin A increased [Unknown]
  - Cholelithiasis [Unknown]
  - Chronic hepatitis [Unknown]
  - Renal failure [Fatal]

NARRATIVE: CASE EVENT DATE: 2019
